FAERS Safety Report 4400144-4 (Version None)
Quarter: 2004Q3

REPORT INFORMATION
  Report Type: 
  Country: None (occurrence: None)
  Receive Date: 20040716
  Receipt Date: 20040630
  Transmission Date: 20050211
  Serious: Yes (Other)
  Sender: FDA-Public Use
  Company Number: USA040567737

PATIENT
  Age: 84 Year
  Sex: Female

DRUGS (6)
  1. EVISTA [Suspect]
     Indication: OSTEOPOROSIS
  2. NEXIUM [Concomitant]
  3. ZYRTEC [Concomitant]
  4. NASACORT [Concomitant]
  5. CARAFATE [Concomitant]
  6. ERYTHROMYCIN [Concomitant]

REACTIONS (1)
  - NO ADVERSE EFFECT [None]
